FAERS Safety Report 19694588 (Version 5)
Quarter: 2021Q3

REPORT INFORMATION
  Report Type: Report from Study
  Country: CH (occurrence: CH)
  Receive Date: 20210812
  Receipt Date: 20210927
  Transmission Date: 20211014
  Serious: Yes (Hospitalization)
  Sender: FDA-Public Use
  Company Number: NVSC2021CH178372

PATIENT
  Age: 62 Year
  Sex: Female
  Weight: 51.5 kg

DRUGS (54)
  1. PARAGOL [Concomitant]
     Active Substance: MINERAL OIL\PHENOLPHTHALEIN
     Indication: CONSTIPATION
     Dosage: UNK
     Route: 065
     Dates: start: 20210713
  2. FRESUBIN JUCY DRINK [Concomitant]
     Indication: MALNUTRITION
     Dosage: UNK
     Route: 065
     Dates: start: 20210706
  3. KENACORT A ORABASE [Concomitant]
     Indication: ORAL DISCOMFORT
     Dosage: UNK
     Route: 065
     Dates: start: 20210719, end: 20210804
  4. PYRALVEX [Concomitant]
     Active Substance: RHUBARB\SALICYLIC ACID
     Indication: ORAL DISCOMFORT
     Dosage: UNK
     Route: 065
     Dates: start: 20210717, end: 20210804
  5. VALVERDE [Concomitant]
     Active Substance: HERBALS
     Indication: CONSTIPATION
     Dosage: UNK
     Route: 065
     Dates: start: 20210713
  6. PANTOPRAZOL [Concomitant]
     Active Substance: PANTOPRAZOLE SODIUM
     Indication: PRODUCT USED FOR UNKNOWN INDICATION
     Dosage: UNK
     Route: 065
     Dates: start: 20210707, end: 20210708
  7. GABAPENTIN. [Concomitant]
     Active Substance: GABAPENTIN
     Dosage: UNK
     Route: 065
     Dates: start: 20210816
  8. DUROGESIC [Concomitant]
     Active Substance: FENTANYL
     Indication: ASCITES
     Dosage: UNK
     Route: 065
     Dates: start: 20210713, end: 20210720
  9. ALBUMIN [Concomitant]
     Active Substance: ALBUMIN HUMAN
     Indication: ASCITES
     Dosage: UNK
     Route: 065
     Dates: start: 20210714
  10. AMPHO MORONAL [Concomitant]
     Active Substance: AMPHOTERICIN B
     Indication: ORAL CANDIDIASIS
     Dosage: UNK
     Route: 065
     Dates: start: 20210805, end: 20210809
  11. ORACEA [Concomitant]
     Active Substance: DOXYCYCLINE
     Indication: ASCITES
  12. RESONIUM?A [Concomitant]
     Active Substance: SODIUM POLYSTYRENE SULFONATE
     Indication: HYPERKALAEMIA
     Dosage: UNK
     Route: 065
     Dates: start: 20210807, end: 20210808
  13. CALCIMAGON [Concomitant]
     Active Substance: CALCIUM
     Indication: MALNUTRITION
     Dosage: UNK
     Route: 065
     Dates: start: 20210713
  14. BENERVA [Concomitant]
     Active Substance: THIAMINE HYDROCHLORIDE
     Indication: MALNUTRITION
     Dosage: UNK
     Route: 065
     Dates: start: 20210713, end: 20210716
  15. PROTOPIC [Concomitant]
     Active Substance: TACROLIMUS
     Indication: RASH
     Dosage: UNK
     Route: 065
     Dates: start: 20210728, end: 20210729
  16. NOVALGIN [Concomitant]
     Indication: ASCITES
     Dosage: UNK
     Route: 065
     Dates: start: 20210629
  17. PASPERTIN [Concomitant]
     Indication: ASCITES
     Dosage: UNK
     Route: 065
     Dates: start: 20210705
  18. BEPANTHEN EYE [Concomitant]
     Active Substance: DEXPANTHENOL\HYALURONATE SODIUM
     Indication: VISUAL IMPAIRMENT
     Dosage: UNK
     Route: 065
     Dates: start: 20210723
  19. ELIDEL [Concomitant]
     Active Substance: PIMECROLIMUS
     Indication: RASH
     Dosage: UNK
     Route: 065
     Dates: start: 20210728
  20. ONDANSETRON [Concomitant]
     Active Substance: ONDANSETRON
     Indication: PRODUCT USED FOR UNKNOWN INDICATION
     Dosage: UNK
     Route: 065
     Dates: start: 20210705, end: 20210713
  21. GABAPENTIN. [Concomitant]
     Active Substance: GABAPENTIN
     Indication: PRODUCT USED FOR UNKNOWN INDICATION
     Dosage: UNK
     Route: 065
     Dates: start: 20210813
  22. IMAZOL [Concomitant]
     Indication: PRODUCT USED FOR UNKNOWN INDICATION
     Dosage: UNK
     Route: 065
     Dates: start: 20210822
  23. NAPORAFENIB. [Suspect]
     Active Substance: NAPORAFENIB
     Indication: MALIGNANT MELANOMA
     Dosage: 400 MG, BID
     Route: 048
     Dates: start: 20210714
  24. TRAMETINIB [Suspect]
     Active Substance: TRAMETINIB
     Indication: MALIGNANT MELANOMA
     Dosage: 0.5 MG, QD
     Route: 048
     Dates: start: 20210714
  25. SUPRADYN ENERGY [Concomitant]
     Active Substance: MINERALS\VITAMINS
     Indication: MALNUTRITION
     Dosage: UNK
     Route: 065
     Dates: start: 20210713
  26. LACRYCON [Concomitant]
     Active Substance: HYALURONATE SODIUM
     Indication: VISUAL IMPAIRMENT
     Dosage: UNK
     Route: 065
     Dates: start: 20210723
  27. ELTROXIN [Concomitant]
     Active Substance: LEVOTHYROXINE
     Indication: HYPOTHYROIDISM
     Dosage: UNK
     Route: 065
     Dates: start: 20180411
  28. VALACICLOVIR [Concomitant]
     Active Substance: VALACYCLOVIR HYDROCHLORIDE
     Indication: HERPES SIMPLEX
     Dosage: UNK
     Route: 065
     Dates: start: 20210809, end: 20210816
  29. TARGIN [Concomitant]
     Active Substance: NALOXONE HYDROCHLORIDE\OXYCODONE HYDROCHLORIDE
     Indication: PRODUCT USED FOR UNKNOWN INDICATION
     Dosage: 5 MG/2.5 MG
     Route: 065
     Dates: start: 20210705, end: 20210712
  30. OMEPRAZOL [Concomitant]
     Active Substance: OMEPRAZOLE
     Indication: PRODUCT USED FOR UNKNOWN INDICATION
     Dosage: UNK
     Route: 065
     Dates: end: 20210706
  31. VIBRAMYCIN [Concomitant]
     Active Substance: DOXYCYCLINE
     Indication: PRODUCT USED FOR UNKNOWN INDICATION
     Dosage: UNK
     Route: 065
     Dates: start: 20210819
  32. CALCIMAGON D3 [Concomitant]
     Active Substance: CALCIUM\CHOLECALCIFEROL
     Indication: MALNUTRITION
     Dosage: UNK
     Route: 065
     Dates: start: 20210713
  33. DENOSUMAB [Concomitant]
     Active Substance: DENOSUMAB
     Indication: METASTASES TO BONE
     Dosage: UNK
     Route: 065
     Dates: start: 20210710
  34. TEMESTA [Concomitant]
     Indication: ASCITES
     Dosage: UNK
     Route: 065
     Dates: start: 20210705
  35. EMOVATE [Concomitant]
     Indication: RASH
     Dosage: UNK
     Route: 065
     Dates: start: 20210728, end: 20210804
  36. ORACEA [Concomitant]
     Active Substance: DOXYCYCLINE
     Indication: RASH
     Dosage: UNK
     Route: 065
     Dates: start: 20210805, end: 20210818
  37. GAVISCON [Concomitant]
     Active Substance: ALUMINUM HYDROXIDE\MAGNESIUM CARBONATE
     Indication: GASTROOESOPHAGEAL REFLUX DISEASE
     Dosage: UNK
     Route: 065
     Dates: start: 20210709
  38. HYLO DUAL [Concomitant]
     Indication: PRODUCT USED FOR UNKNOWN INDICATION
     Dosage: UNK
     Route: 065
     Dates: start: 20210811
  39. BETNESOL [Concomitant]
     Indication: ORAL DISCOMFORT
     Dosage: UNK
     Route: 065
     Dates: start: 20210722, end: 20210804
  40. MOVICOL [Concomitant]
     Active Substance: POLYETHYLENE GLYCOL 3350\POTASSIUM CHLORIDE\SODIUM BICARBONATE\SODIUM CHLORIDE
     Indication: PRODUCT USED FOR UNKNOWN INDICATION
     Route: 065
  41. LAXOBERON [Concomitant]
     Active Substance: SODIUM PICOSULFATE
     Indication: CONSTIPATION
     Dosage: UNK
     Route: 065
     Dates: start: 20210712
  42. FREKA?CLYSS [Concomitant]
     Indication: CONSTIPATION
     Dosage: UNK
     Route: 065
     Dates: start: 20210713
  43. MORPHIN [Concomitant]
     Active Substance: MORPHINE
     Indication: ASCITES
     Dosage: UNK
     Route: 065
     Dates: start: 20210713, end: 20210720
  44. PREDNISON [Concomitant]
     Active Substance: PREDNISONE
     Indication: ASCITES
     Dosage: UNK
     Route: 065
     Dates: start: 20210714
  45. NIVOLUMAB [Concomitant]
     Active Substance: NIVOLUMAB
     Indication: MALIGNANT MELANOMA
     Dosage: UNK
     Route: 065
     Dates: start: 20180302, end: 20210616
  46. FRAGMIN [Concomitant]
     Active Substance: DALTEPARIN SODIUM
     Indication: THROMBOSIS PROPHYLAXIS
     Dosage: UNK
     Route: 065
     Dates: start: 20210706
  47. BETNOVATE [Concomitant]
     Active Substance: BETAMETHASONE
     Indication: RASH
     Dosage: UNK
     Route: 065
     Dates: start: 20210728
  48. BECOZYME FORTE [Concomitant]
     Indication: MALNUTRITION
     Dosage: UNK
     Route: 065
     Dates: start: 20210713, end: 20210716
  49. ALDACTONE [Concomitant]
     Active Substance: SPIRONOLACTONE
     Indication: PRODUCT USED FOR UNKNOWN INDICATION
     Dosage: UNK
     Route: 065
     Dates: start: 20210705, end: 20210706
  50. NACL [Concomitant]
     Active Substance: SODIUM CHLORIDE
     Indication: PRODUCT USED FOR UNKNOWN INDICATION
     Dosage: UNK
     Route: 065
     Dates: start: 20210813
  51. PHOSCAP [Concomitant]
     Indication: HYPOPHOSPHATAEMIA
     Dosage: UNK
     Route: 065
     Dates: start: 20210717, end: 20210726
  52. EUTHYROX [Concomitant]
     Active Substance: LEVOTHYROXINE SODIUM
     Indication: HYPOTHYROIDISM
     Dosage: UNK
     Route: 065
     Dates: start: 20180411
  53. OXYNORM [Concomitant]
     Active Substance: OXYCODONE HYDROCHLORIDE
     Indication: ASCITES
     Dosage: UNK
     Route: 065
     Dates: start: 20210705
  54. METAMUCIL [Concomitant]
     Active Substance: PLANTAGO SEED
     Indication: PRODUCT USED FOR UNKNOWN INDICATION
     Route: 065

REACTIONS (1)
  - Rash maculo-papular [Not Recovered/Not Resolved]

NARRATIVE: CASE EVENT DATE: 20210805
